FAERS Safety Report 16233287 (Version 1)
Quarter: 2019Q2

REPORT INFORMATION
  Report Type: Spontaneous
  Country: US (occurrence: US)
  Receive Date: 20190424
  Receipt Date: 20190424
  Transmission Date: 20190711
  Serious: No
  Sender: FDA-Public Use
  Company Number: US-TEVA-2019-US-1032760

PATIENT
  Sex: Female

DRUGS (1)
  1. FOSINOPRIL SODIUM. [Suspect]
     Active Substance: FOSINOPRIL SODIUM
     Indication: BLOOD PRESSURE ABNORMAL
     Route: 065

REACTIONS (3)
  - Drug ineffective [Unknown]
  - Muscle tightness [Unknown]
  - Hypertension [Unknown]
